FAERS Safety Report 20788688 (Version 1)
Quarter: 2022Q2

REPORT INFORMATION
  Report Type: Spontaneous
  Country: US (occurrence: US)
  Receive Date: 20220505
  Receipt Date: 20220505
  Transmission Date: 20220721
  Serious: No
  Sender: FDA-Public Use
  Company Number: US-SA-SAC20220428000062

PATIENT
  Sex: Female

DRUGS (1)
  1. DUPIXENT [Suspect]
     Active Substance: DUPILUMAB
     Indication: Dermatitis atopic
     Dosage: 300 MG, QOW
     Route: 058

REACTIONS (7)
  - Trigger finger [Unknown]
  - Carpal tunnel syndrome [Unknown]
  - Dermatitis [Recovered/Resolved]
  - Lip pain [Recovered/Resolved]
  - Cheilitis [Recovered/Resolved]
  - Skin mass [Unknown]
  - Rash [Not Recovered/Not Resolved]
